FAERS Safety Report 8967663 (Version 2)
Quarter: 2013Q1

REPORT INFORMATION
  Report Type: Spontaneous
  Country: US (occurrence: None)
  Receive Date: 20121206
  Receipt Date: 20121206
  Transmission Date: 20140127
  Serious: Yes (Other)
  Sender: FDA-Public Use
  Company Number: USA/USA/12/0026882

PATIENT
  Age: 8 Year
  Sex: Male

DRUGS (4)
  1. ONDANSETRON (ONDANSETRON HYDROCHLORIDE) [Suspect]
     Indication: PRODUCT USED FOR UNKNOWN INDICATION
     Dosage: 15 DOSAGE FORMS, ONCE, ORAL
     Route: 048
  2. MERCAPTOPURINE (MERCAPTOPURINE) [Suspect]
     Indication: PRECURSOR B-LYMPHOBLASTIC LYMPHOMA
     Route: 048
  3. METHOTREXATE (METHOTREXATE) [Suspect]
     Indication: PRECURSOR B-LYMPHOBLASTIC LYMPHOMA
     Route: 048
  4. SULFAMETHOXASOLE/TRIMETHOPRIM (BACTRIM) [Suspect]
     Indication: PRODUCT USED FOR UNKNOWN INDICATION
     Route: 048

REACTIONS (7)
  - Vomiting [None]
  - Anaemia macrocytic [None]
  - Hypotension [None]
  - White blood cell count decreased [None]
  - Intentional overdose [None]
  - Parent-child problem [None]
  - No therapeutic response [None]
